FAERS Safety Report 6093621-4 (Version None)
Quarter: 2009Q1

REPORT INFORMATION
  Report Type: 
  Country: None (occurrence: None)
  Receive Date: 20090226
  Receipt Date: 20090219
  Transmission Date: 20090719
  Serious: Yes (Other)
  Sender: FDA-Public Use
  Company Number: PHHY2009FR03152

PATIENT
  Sex: Male
  Weight: 75.5 kg

DRUGS (9)
  1. EXELON [Suspect]
     Indication: DEMENTIA ALZHEIMER'S TYPE
     Dosage: 4.6 MG, QD
     Route: 062
     Dates: start: 20081113, end: 20081121
  2. EXELON [Suspect]
     Dosage: 9.5 MG, QD
     Route: 062
     Dates: start: 20081122, end: 20090119
  3. PLAVIX [Concomitant]
     Indication: ANGINA PECTORIS
     Dosage: UNK
     Dates: start: 20081107
  4. IKOREL [Concomitant]
     Indication: ANGINA PECTORIS
     Dosage: UNK
     Dates: start: 20081107
  5. LIPANTHYL [Concomitant]
     Indication: HYPERTENSION
     Dosage: UNK
     Dates: start: 20081107
  6. CARDENSIEL [Concomitant]
     Indication: HYPERTENSION
     Dosage: UNK
     Dates: start: 20081107
  7. DISCOTRINE [Concomitant]
     Indication: HYPERTENSION
     Dosage: UNK
     Dates: start: 20081107
  8. EQUANIL [Concomitant]
     Indication: ABNORMAL BEHAVIOUR
     Dosage: UNK
     Dates: start: 20081107
  9. RISPERDAL [Concomitant]
     Indication: ABNORMAL BEHAVIOUR
     Dosage: UNK
     Dates: start: 20081107

REACTIONS (3)
  - APPLICATION SITE REACTION [None]
  - PEMPHIGOID [None]
  - SKIN IRRITATION [None]
